FAERS Safety Report 4740044-3 (Version None)
Quarter: 2005Q3

REPORT INFORMATION
  Report Type: 
  Country: None (occurrence: None)
  Receive Date: 20050810
  Receipt Date: 20040227
  Transmission Date: 20060218
  Serious: No
  Sender: FDA-Public Use
  Company Number: US-GLAXOSMITHKLINE-A0500371A

PATIENT
  Sex: Male

DRUGS (8)
  1. PAXIL [Suspect]
     Dosage: 20MG TWICE PER DAY
     Route: 048
     Dates: start: 20040101
  2. VIOXX [Suspect]
  3. ELAVIL [Concomitant]
  4. INHALERS [Concomitant]
  5. NEURONTIN [Concomitant]
  6. XANAX [Concomitant]
  7. TENORMIN [Concomitant]
  8. SYNTHROID [Concomitant]

REACTIONS (5)
  - BLOOD PRESSURE INCREASED [None]
  - DYSPEPSIA [None]
  - MELAENA [None]
  - NAUSEA [None]
  - SOMNOLENCE [None]
